FAERS Safety Report 4275930-4 (Version None)
Quarter: 2004Q1

REPORT INFORMATION
  Report Type: 
  Country: None (occurrence: None)
  Receive Date: 20040121
  Receipt Date: 20030320
  Transmission Date: 20041129
  Serious: No
  Sender: FDA-Public Use
  Company Number: US-GLAXOSMITHKLINE-A0401282A

PATIENT
  Age: 39 Year
  Sex: Female

DRUGS (3)
  1. VALTREX [Suspect]
     Dosage: 1G UNKNOWN
     Route: 048
     Dates: start: 20030127
  2. PEPCID [Concomitant]
  3. LEXAPRO [Concomitant]

REACTIONS (3)
  - BREAST PAIN [None]
  - PHARYNGEAL ERYTHEMA [None]
  - RENAL PAIN [None]
